FAERS Safety Report 5354231-7 (Version None)
Quarter: 2007Q2

REPORT INFORMATION
  Report Type: 
  Country: None (occurrence: None)
  Receive Date: 20070612
  Receipt Date: 20070604
  Transmission Date: 20071010
  Serious: Yes (Other)
  Sender: FDA-Public Use
  Company Number: US-ELI_LILLY_AND_COMPANY-US200706000594

PATIENT
  Sex: Male

DRUGS (2)
  1. HUMALOG [Suspect]
     Indication: DIABETES MELLITUS
     Dosage: UNK, AS NEEDED
     Dates: start: 19890101
  2. LANTUS [Concomitant]
     Dosage: 66 U, EACH EVENING

REACTIONS (2)
  - HYPOAESTHESIA [None]
  - NON-HODGKIN'S LYMPHOMA [None]
